FAERS Safety Report 8802749 (Version 1)
Quarter: 2012Q4

REPORT INFORMATION
  Report Type: 
  Country: US (occurrence: US)
  Receive Date: 20120921
  Receipt Date: 20120921
  Transmission Date: 20130627
  Serious: No
  Sender: FDA-Public Use
  Company Number: US-009507513-1209USA003428

PATIENT
  Sex: Female

DRUGS (6)
  1. ISENTRESS [Suspect]
     Route: 048
  2. KALETRA [Suspect]
  3. REYATAZ [Suspect]
  4. NORVIR [Suspect]
  5. EPZICOM [Suspect]
  6. INTELENCE [Suspect]

REACTIONS (1)
  - Urticaria [Unknown]
